FAERS Safety Report 20807116 (Version 1)
Quarter: 2022Q2

REPORT INFORMATION
  Report Type: Report from Study
  Country: US (occurrence: None)
  Receive Date: 20220510
  Receipt Date: 20220510
  Transmission Date: 20220721
  Serious: Yes (Death, Other)
  Sender: FDA-Public Use
  Company Number: US-ROCHE-3091918

PATIENT
  Age: 66 Year
  Sex: Female

DRUGS (1)
  1. COBIMETINIB [Suspect]
     Active Substance: COBIMETINIB
     Indication: Gastrointestinal carcinoma
     Dosage: 40-60 MG
     Route: 048

REACTIONS (5)
  - Acute kidney injury [Fatal]
  - Acidosis [Unknown]
  - Urinary tract obstruction [Unknown]
  - Sepsis [Unknown]
  - Multiple organ dysfunction syndrome [Fatal]

NARRATIVE: CASE EVENT DATE: 20220212
